FAERS Safety Report 20080180 (Version 1)
Quarter: 2021Q4

REPORT INFORMATION
  Report Type: Spontaneous
  Country: US (occurrence: US)
  Receive Date: 20211117
  Receipt Date: 20211117
  Transmission Date: 20220303
  Serious: No
  Sender: FDA-Public Use
  Company Number: US-ALLERGAN-2124880US

PATIENT
  Age: 62 Year
  Sex: Female
  Weight: 78.73 kg

DRUGS (3)
  1. NAMENDA [Suspect]
     Active Substance: MEMANTINE HYDROCHLORIDE
     Indication: Nervous system disorder prophylaxis
     Dosage: 5 MG, BID
     Route: 048
     Dates: start: 20210620
  2. RADIATION THERAPY [Suspect]
     Active Substance: RADIATION THERAPY
     Indication: Brain neoplasm
     Dosage: UNK
     Dates: start: 20210621
  3. DEXAMETHASONE [Concomitant]
     Active Substance: DEXAMETHASONE
     Indication: Prophylaxis
     Dosage: UNK
     Dates: start: 20210615

REACTIONS (7)
  - Myalgia [Not Recovered/Not Resolved]
  - Nausea [Not Recovered/Not Resolved]
  - Agitation [Not Recovered/Not Resolved]
  - Malaise [Not Recovered/Not Resolved]
  - Off label use [Unknown]
  - Headache [Not Recovered/Not Resolved]
  - Pain [Not Recovered/Not Resolved]

NARRATIVE: CASE EVENT DATE: 20210630
